FAERS Safety Report 7950226-5 (Version None)
Quarter: 2011Q4

REPORT INFORMATION
  Report Type: 
  Country: None (occurrence: None)
  Receive Date: 20111130
  Receipt Date: 20111115
  Transmission Date: 20120403
  Serious: Yes (Hospitalization, Other)
  Sender: FDA-Public Use
  Company Number: NL-MEDIMMUNE-MEDI-0013962

PATIENT
  Sex: Female
  Weight: 6.62 kg

DRUGS (2)
  1. SYNAGIS [Suspect]
     Route: 030
     Dates: start: 20111018, end: 20111018
  2. SYNAGIS [Suspect]
     Route: 030
     Dates: start: 20111115

REACTIONS (3)
  - PALLOR [None]
  - PLEURAL EFFUSION [None]
  - CARDIAC OPERATION [None]
